FAERS Safety Report 7491305-9 (Version None)
Quarter: 2011Q2

REPORT INFORMATION
  Report Type: 
  Country: None (occurrence: None)
  Receive Date: 20110519
  Receipt Date: 20110509
  Transmission Date: 20111010
  Serious: Yes (Disabling)
  Sender: FDA-Public Use
  Company Number: B0717139A

PATIENT
  Sex: Male
  Weight: 85 kg

DRUGS (10)
  1. PAROXETINE HCL [Concomitant]
     Dosage: 20MG PER DAY
  2. AERIUS [Concomitant]
     Dosage: 5MG PER DAY
  3. RALTEGRAVIR [Suspect]
     Indication: HIV INFECTION
     Dosage: 400MG TWICE PER DAY
     Route: 048
     Dates: start: 20110112
  4. NORVIR [Concomitant]
     Indication: HIV INFECTION
     Dates: start: 20060628
  5. PREZISTA [Concomitant]
     Dosage: 400MG PER DAY
  6. ATAZANAVIR [Concomitant]
     Indication: HIV INFECTION
     Dates: start: 20060628
  7. OMEPRAZOLE [Concomitant]
     Dosage: 20MG PER DAY
  8. VALACYCLOVIR HYDROCHLORIDE [Concomitant]
     Dosage: 2TAB PER DAY
  9. MYCOSTER [Concomitant]
     Dosage: 1APP TWICE PER DAY
  10. MARAVIROC [Suspect]
     Indication: HIV INFECTION
     Dosage: 150MG TWICE PER DAY
     Route: 048
     Dates: start: 20110112

REACTIONS (1)
  - ARTHRALGIA [None]
